FAERS Safety Report 25148319 (Version 1)
Quarter: 2025Q2

REPORT INFORMATION
  Report Type: Spontaneous
  Country: US (occurrence: US)
  Receive Date: 20250402
  Receipt Date: 20250402
  Transmission Date: 20250717
  Serious: Yes (Other)
  Sender: Haleon PLC
  Company Number: US-HALEON-2235714

PATIENT

DRUGS (1)
  1. SENSODYNE CLINICAL WHITE INTENSIVE CLEAN [Suspect]
     Active Substance: POTASSIUM NITRATE\SODIUM FLUORIDE
     Indication: Product used for unknown indication

REACTIONS (5)
  - Oral mucosal exfoliation [Unknown]
  - Dermatitis contact [Unknown]
  - Gingival pain [Unknown]
  - Gingival discomfort [Unknown]
  - Oral discomfort [Unknown]
